FAERS Safety Report 15009858 (Version 2)
Quarter: 2018Q3

REPORT INFORMATION
  Report Type: Spontaneous
  Country: US (occurrence: US)
  Receive Date: 20180614
  Receipt Date: 20180903
  Transmission Date: 20181010
  Serious: Yes (Other)
  Sender: FDA-Public Use
  Company Number: US-LUPIN PHARMACEUTICALS INC.-2018-04357

PATIENT
  Age: 62 Year
  Sex: Female

DRUGS (4)
  1. CEFTRIAXONE. [Concomitant]
     Active Substance: CEFTRIAXONE
     Indication: SEPSIS
     Dosage: UNK
     Route: 042
  2. CEFTRIAXONE. [Concomitant]
     Active Substance: CEFTRIAXONE
     Indication: INCARCERATED INGUINAL HERNIA
  3. METRONIDAZOLE. [Suspect]
     Active Substance: METRONIDAZOLE
     Indication: INCARCERATED INGUINAL HERNIA
  4. METRONIDAZOLE. [Suspect]
     Active Substance: METRONIDAZOLE
     Indication: SEPSIS
     Dosage: UNK
     Route: 042

REACTIONS (7)
  - Tinnitus [Unknown]
  - Confusional state [Unknown]
  - Dizziness [Unknown]
  - Status epilepticus [Unknown]
  - Dysmetria [Unknown]
  - Ataxia [Unknown]
  - Neurotoxicity [Unknown]
